FAERS Safety Report 7277743-8 (Version None)
Quarter: 2011Q1

REPORT INFORMATION
  Report Type: 
  Country: None (occurrence: None)
  Receive Date: 20110131
  Receipt Date: 20110120
  Transmission Date: 20110831
  Serious: Yes (Congenital Anomaly)
  Sender: FDA-Public Use
  Company Number: LEO-2011-00104

PATIENT
  Sex: Female

DRUGS (7)
  1. CELLCEPT [Suspect]
     Indication: DRUG EXPOSURE DURING PREGNANCY
     Dosage: 500 MG (250 MG, 2 IN 1 D), TRANSPLACENTAL
     Route: 064
  2. PROGRAF [Suspect]
     Indication: DRUG EXPOSURE DURING PREGNANCY
     Dosage: 2.5 GM (2.5 GM, 1 IN 1 D), TRANSPLACENTAL
     Route: 064
     Dates: end: 20090515
  3. ASPEGIC 325 [Suspect]
     Indication: DRUG EXPOSURE DURING PREGNANCY
     Dosage: 250 MG (250 MG, 1 IN 1 D), TRANSPLACENTAL
     Route: 064
     Dates: end: 20090501
  4. DELURSAN (URSODEOXYCHOLIC ACID) (200 MILLIGRAM) [Suspect]
     Indication: DRUG EXPOSURE DURING PREGNANCY
     Dosage: 800 MG (200 MG, 4 IN 1 D), TRANSPLACENTAL
     Route: 064
     Dates: end: 20090915
  5. CALTRATE (CALCIUM CARBONATE) [Suspect]
     Indication: DRUG EXPOSURE DURING PREGNANCY
     Dosage: 1 DOSAGE FORMS (1 IN 1 D), TRANSPLACENTAL
     Route: 064
     Dates: end: 20090515
  6. INNOHEP [Suspect]
     Indication: DRUG EXPOSURE DURING PREGNANCY
     Dosage: 10000 IU (10000 IU, 1 IN 1 D), TRANSPLACENTAL
     Route: 064
     Dates: start: 20000101
  7. PENTASA [Suspect]
     Indication: DRUG EXPOSURE DURING PREGNANCY
     Dosage: 1 DOSAGE FORMS (1 IN 1 D), TRANSPLACENTAL
     Route: 064
     Dates: start: 20090223, end: 20090515

REACTIONS (3)
  - CAESAREAN SECTION [None]
  - MATERNAL DRUGS AFFECTING FOETUS [None]
  - DYSMORPHISM [None]
